FAERS Safety Report 4795172-3 (Version None)
Quarter: 2005Q4

REPORT INFORMATION
  Report Type: 
  Country: None (occurrence: None)
  Receive Date: 20051006
  Receipt Date: 20050923
  Transmission Date: 20060501
  Serious: Yes (Other)
  Sender: FDA-Public Use
  Company Number: US-2005-018066

PATIENT
  Age: 59 Year
  Sex: Female
  Weight: 55 kg

DRUGS (5)
  1. MAGNEVIST [Suspect]
     Indication: ANGIOGRAM
     Dosage: SEE IMAGE
     Route: 042
     Dates: start: 20050607, end: 20050607
  2. MAGNEVIST [Suspect]
     Indication: ANGIOGRAM
     Dosage: SEE IMAGE
     Route: 042
     Dates: start: 20050714, end: 20050714
  3. MIRAPEX [Suspect]
     Indication: RESTLESS LEGS SYNDROME
     Dosage: 6 MG 1X/DAY
     Dates: end: 20050601
  4. GABAPENTIN [Concomitant]
  5. HEPARIN [Concomitant]

REACTIONS (34)
  - ARTERIAL SPASM [None]
  - ARTHRALGIA [None]
  - DYSSTASIA [None]
  - EMBOLISM [None]
  - FATIGUE [None]
  - FEELING COLD [None]
  - HYPERAESTHESIA [None]
  - HYPOAESTHESIA [None]
  - IMPAIRED DRIVING ABILITY [None]
  - INFLUENZA LIKE ILLNESS [None]
  - INJECTION SITE EXTRAVASATION [None]
  - INSOMNIA [None]
  - MONONEUROPATHY [None]
  - MYALGIA [None]
  - NERVOUS SYSTEM DISORDER [None]
  - NO REACTION ON PREVIOUS EXPOSURE TO DRUG [None]
  - OEDEMA PERIPHERAL [None]
  - PAIN [None]
  - PAIN IN EXTREMITY [None]
  - PALLOR [None]
  - PARAESTHESIA [None]
  - PERIPHERAL COLDNESS [None]
  - PERIPHERAL ISCHAEMIA [None]
  - PULSE ABSENT [None]
  - PULSE PRESSURE DECREASED [None]
  - RASH [None]
  - SENSATION OF PRESSURE [None]
  - SENSORY LOSS [None]
  - SERUM SICKNESS [None]
  - SKIN INFLAMMATION [None]
  - VASCULITIS [None]
  - VASODILATATION [None]
  - VASOSPASM [None]
  - VEIN DISORDER [None]
